FAERS Safety Report 8023809-4 (Version None)
Quarter: 2012Q1

REPORT INFORMATION
  Report Type: 
  Country: None (occurrence: None)
  Receive Date: 20120105
  Receipt Date: 20111227
  Transmission Date: 20120608
  Serious: Yes (Other)
  Sender: FDA-Public Use
  Company Number: US-JNJFOC-20111211778

PATIENT
  Sex: Female
  Weight: 75.3 kg

DRUGS (5)
  1. CRESTOR [Concomitant]
     Route: 048
     Dates: start: 20010101
  2. HORMONE REPLACEMENT THERAPY [Concomitant]
     Indication: HORMONE LEVEL ABNORMAL
     Route: 048
     Dates: start: 20020101
  3. REMICADE [Suspect]
     Indication: RHEUMATOID ARTHRITIS
     Route: 042
     Dates: start: 20100101
  4. REMICADE [Suspect]
     Route: 042
     Dates: start: 20080101, end: 20100101
  5. METHOTREXATE [Concomitant]
     Indication: RHEUMATOID ARTHRITIS
     Route: 048

REACTIONS (7)
  - PUPILLARY DISORDER [None]
  - ARTHRALGIA [None]
  - SUPERFICIAL INJURY OF EYE [None]
  - EYE DISORDER [None]
  - VISUAL IMPAIRMENT [None]
  - EYE INFECTION BACTERIAL [None]
  - VISION BLURRED [None]
